FAERS Safety Report 16396877 (Version 2)
Quarter: 2019Q3

REPORT INFORMATION
  Report Type: Report from Study
  Country: JP (occurrence: JP)
  Receive Date: 20190606
  Receipt Date: 20190803
  Transmission Date: 20191004
  Serious: Yes (Death, Hospitalization)
  Sender: FDA-Public Use
  Company Number: JP-ROCHE-2330842

PATIENT
  Age: 76 Year
  Sex: Male
  Weight: 61 kg

DRUGS (1)
  1. ATEZOLIZUMAB. [Suspect]
     Active Substance: ATEZOLIZUMAB
     Indication: LUNG ADENOCARCINOMA
     Route: 041
     Dates: start: 20180822, end: 20180822

REACTIONS (3)
  - Trousseau^s syndrome [Not Recovered/Not Resolved]
  - Decreased appetite [Recovering/Resolving]
  - Cerebral infarction [Not Recovered/Not Resolved]

NARRATIVE: CASE EVENT DATE: 20180828
